FAERS Safety Report 9188741 (Version 1)
Quarter: 2013Q1

REPORT INFORMATION
  Report Type: Spontaneous
  Country: JP (occurrence: JP)
  Receive Date: 20130325
  Receipt Date: 20130325
  Transmission Date: 20140127
  Serious: Yes (Hospitalization)
  Sender: FDA-Public Use
  Company Number: JP-ASTELLAS-2013JP004176

PATIENT
  Age: 80 Year
  Sex: Male

DRUGS (4)
  1. BETANIS [Suspect]
     Indication: HYPERTONIC BLADDER
     Dosage: 50 MG, UID/QD
     Route: 048
     Dates: start: 20130117, end: 20130218
  2. BAYASPIRIN [Concomitant]
     Dosage: 100 MG, UNKNOWN/D
     Route: 048
  3. ZYLORIC [Concomitant]
     Dosage: 100 MG, UNKNOWN/D
     Route: 048
  4. BEZATOL SR [Concomitant]
     Dosage: 200 G, UNKNOWN/D
     Route: 048

REACTIONS (1)
  - Drug-induced liver injury [Recovered/Resolved]
